FAERS Safety Report 10143021 (Version 1)
Quarter: 2014Q2

REPORT INFORMATION
  Report Type: Spontaneous
  Country: BR (occurrence: BR)
  Receive Date: 20140430
  Receipt Date: 20140430
  Transmission Date: 20141212
  Serious: Yes (Hospitalization)
  Sender: FDA-Public Use
  Company Number: BR-PFIZER INC-2014117357

PATIENT
  Age: 60 Year
  Sex: Female

DRUGS (4)
  1. LYRICA [Suspect]
     Indication: FIBROMYALGIA
     Dosage: 75 MG (1 CAPSULE) DAILY
     Route: 048
  2. DIPROSPAN [Concomitant]
  3. INDOCID [Concomitant]
  4. TANDRILAX [Concomitant]

REACTIONS (1)
  - Sjogren^s syndrome [Unknown]
